FAERS Safety Report 6824611-9 (Version None)
Quarter: 2010Q3

REPORT INFORMATION
  Report Type: 
  Country: None (occurrence: None)
  Receive Date: 20100708
  Receipt Date: 20100702
  Transmission Date: 20110219
  Serious: Yes (Hospitalization)
  Sender: FDA-Public Use
  Company Number: US-GILEAD-2010-0030212

PATIENT
  Sex: Female

DRUGS (1)
  1. LETAIRIS [Suspect]
     Indication: PULMONARY ARTERIAL HYPERTENSION
     Route: 048
     Dates: start: 20100629

REACTIONS (4)
  - BLOOD GLUCOSE DECREASED [None]
  - CONFUSIONAL STATE [None]
  - MALAISE [None]
  - URINARY TRACT INFECTION [None]
